FAERS Safety Report 23966370 (Version 2)
Quarter: 2024Q2

REPORT INFORMATION
  Report Type: Spontaneous
  Country: FI (occurrence: FI)
  Receive Date: 20240612
  Receipt Date: 20240624
  Transmission Date: 20240715
  Serious: Yes (Life-Threatening, Other)
  Sender: FDA-Public Use
  Company Number: FI-TEVA-VS-3207739

PATIENT
  Age: 56 Year
  Sex: Male

DRUGS (2)
  1. TRISENOX [Suspect]
     Active Substance: ARSENIC TRIOXIDE
     Route: 065
     Dates: start: 20220808
  2. TRISENOX [Suspect]
     Active Substance: ARSENIC TRIOXIDE
     Route: 065
     Dates: start: 20230111

REACTIONS (6)
  - Tissue injury [Not Recovered/Not Resolved]
  - Neoplasm malignant [Unknown]
  - Skin injury [Not Recovered/Not Resolved]
  - Cell death [Not Recovered/Not Resolved]
  - Pain [Unknown]
  - Organ failure [Unknown]
